FAERS Safety Report 6325943-3 (Version None)
Quarter: 2009Q3

REPORT INFORMATION
  Report Type: 
  Country: None (occurrence: None)
  Receive Date: 20090824
  Receipt Date: 20090819
  Transmission Date: 20100115
  Serious: Yes (Hospitalization)
  Sender: FDA-Public Use
  Company Number: FR-BRISTOL-MYERS SQUIBB COMPANY-14748362

PATIENT
  Age: 79 Year
  Sex: Male

DRUGS (10)
  1. ELISOR TABS 20 MG [Suspect]
     Dosage: 1 DF = 1 TAB IN THE EVENING
     Route: 048
     Dates: end: 20090729
  2. CORDARONE [Suspect]
     Dosage: 1 DF = 1 TAB/D CORDARONE 200 MG EXCEPT SAT, SUN
     Dates: end: 20090729
  3. NOCTAMIDE [Concomitant]
     Dosage: 1 DF = 1 TAB NOCTAMIDE 2 MG TAB IN EVENING
     Route: 048
     Dates: end: 20090802
  4. ZOLOFT [Concomitant]
     Dosage: ZOLOFT 25 MG CAPSULE 1 DF = 1 CAPS IN EVENING
     Route: 048
     Dates: end: 20090802
  5. PLAVIX [Concomitant]
     Indication: MYOCARDIAL INFARCTION
     Route: 048
  6. PLAVIX [Concomitant]
     Indication: PROPHYLAXIS
     Route: 048
  7. MOPRAL [Concomitant]
     Dosage: 1 DF = 1 CAPS IN THE MORNING
     Route: 048
  8. NICARDIPINE HCL [Concomitant]
     Indication: HYPERTENSION
     Dosage: LOXEN 20 MG TABS 1 DF = 1 TAB IN MORNING, MID-DAY, EVENING
     Route: 048
  9. APROVEL TABS 300 MG [Concomitant]
     Indication: HYPERTENSION
     Dosage: 1 DF = 1 TAB IN THE MORNING
     Route: 048
  10. SERETIDE [Concomitant]
     Indication: CHRONIC OBSTRUCTIVE PULMONARY DISEASE
     Dosage: 1 DF = 1 PUFF, IN MORNING AND EVENING SERETIDE DISKUS 500/50MICROGRAM/DOSE
     Route: 055

REACTIONS (1)
  - INTERSTITIAL LUNG DISEASE [None]
